FAERS Safety Report 19647804 (Version 2)
Quarter: 2021Q3

REPORT INFORMATION
  Report Type: Spontaneous
  Country: US (occurrence: US)
  Receive Date: 20210802
  Receipt Date: 20210823
  Transmission Date: 20211014
  Serious: Yes (Life-Threatening, Hospitalization, Other)
  Sender: FDA-Public Use
  Company Number: US-009507513-2107USA007450

PATIENT
  Age: 51 Year
  Sex: Female
  Weight: 101.6 kg

DRUGS (6)
  1. KEYTRUDA [Suspect]
     Active Substance: PEMBROLIZUMAB
     Indication: TRIPLE POSITIVE BREAST CANCER
  2. PEMETREXED. [Concomitant]
     Active Substance: PEMETREXED
     Indication: TRIPLE POSITIVE BREAST CANCER
  3. KEYTRUDA [Suspect]
     Active Substance: PEMBROLIZUMAB
     Indication: LUNG ADENOCARCINOMA
     Dosage: 2 MG/KG, EVERY 3 WEEKS
  4. PEMETREXED. [Concomitant]
     Active Substance: PEMETREXED
     Indication: LUNG ADENOCARCINOMA
     Dosage: 500 MG/M2, EVERY 3 WEEKS
  5. CARBOPLATIN. [Concomitant]
     Active Substance: CARBOPLATIN
     Indication: LUNG ADENOCARCINOMA
     Dosage: 750MG, EVERY 3 WEEKS
  6. CARBOPLATIN. [Concomitant]
     Active Substance: CARBOPLATIN
     Indication: TRIPLE POSITIVE BREAST CANCER

REACTIONS (5)
  - Rash maculo-papular [Recovered/Resolved]
  - Diabetic ketoacidosis [Recovered/Resolved]
  - Duodenitis [Recovered/Resolved]
  - Type 1 diabetes mellitus [Recovered/Resolved]
  - Hepatotoxicity [Recovered/Resolved]
